FAERS Safety Report 13341106 (Version 2)
Quarter: 2017Q2

REPORT INFORMATION
  Report Type: Report from Study
  Country: US (occurrence: HN)
  Receive Date: 20170316
  Receipt Date: 20170403
  Transmission Date: 20170830
  Serious: Yes (Death)
  Sender: FDA-Public Use
  Company Number: US-SUNOVION-2017SUN001164

PATIENT
  Age: 77 Year
  Sex: Male

DRUGS (2)
  1. INDACATEROL AND GLYCOPYRROLATE [Suspect]
     Active Substance: GLYCOPYRROLATE\INDACATEROL MALEATE
     Indication: LUNG NEOPLASM MALIGNANT
     Dosage: 2 DF, QD
     Route: 065
     Dates: start: 201608
  2. MORPHINE [Concomitant]
     Active Substance: MORPHINE

REACTIONS (2)
  - Lung cancer metastatic [Fatal]
  - Off label use [Unknown]
